FAERS Safety Report 5428636-X (Version None)
Quarter: 2007Q3

REPORT INFORMATION
  Report Type: 
  Country: None (occurrence: None)
  Receive Date: 20070828
  Receipt Date: 20070814
  Transmission Date: 20080115
  Serious: Yes (Hospitalization, Other)
  Sender: FDA-Public Use
  Company Number: US-SHR-US-2006-021280

PATIENT
  Age: 41 Year
  Sex: Female

DRUGS (6)
  1. BETASERON [Suspect]
     Indication: RELAPSING-REMITTING MULTIPLE SCLEROSIS
     Dosage: 8 MIU, EVERY 2D
     Route: 058
     Dates: start: 20050920
  2. CALCIUM CARBONATE [Concomitant]
     Dosage: 650 UNK, 2X/DAY
     Route: 048
  3. COLACE [Concomitant]
     Dosage: UNK, 3X/DAY
     Route: 048
  4. IRON SULFATETHIAMIN COMPOUND TAB [Concomitant]
     Dosage: 325 UNK, 3X/DAY
     Route: 048
  5. VITAMIN CAP [Concomitant]
  6. PERCOCET [Concomitant]
     Indication: PAIN
     Dosage: 5/325 1-2, EVERY 4H P.R.N.

REACTIONS (2)
  - INTERVERTEBRAL DISC DEGENERATION [None]
  - INTERVERTEBRAL DISC PROTRUSION [None]
